FAERS Safety Report 5542684-0 (Version None)
Quarter: 2007Q4

REPORT INFORMATION
  Report Type: 
  Country: None (occurrence: None)
  Receive Date: 20071210
  Receipt Date: 20071129
  Transmission Date: 20080405
  Serious: Yes (Life-Threatening, Other)
  Sender: FDA-Public Use
  Company Number: GB-PFIZER INC-2007087882

PATIENT
  Sex: Male
  Weight: 4 kg

DRUGS (4)
  1. SILDENAFIL (PAH) [Suspect]
     Indication: LUNG DISORDER
     Route: 048
     Dates: start: 20070419, end: 20070423
  2. SILDENAFIL (PAH) [Suspect]
     Indication: PULMONARY HYPERTENSION
  3. ANTIBIOTICS [Concomitant]
  4. ALL OTHER THERAPEUTIC PRODUCTS [Concomitant]

REACTIONS (2)
  - GASTROINTESTINAL NECROSIS [None]
  - INTESTINAL OBSTRUCTION [None]
